FAERS Safety Report 9224752 (Version 3)
Quarter: 2013Q2

REPORT INFORMATION
  Report Type: Report from Study
  Country: JP (occurrence: JP)
  Receive Date: 20130411
  Receipt Date: 20130515
  Transmission Date: 20140414
  Serious: No
  Sender: FDA-Public Use
  Company Number: JP-ASTELLAS-2013JP004696

PATIENT
  Sex: Male
  Weight: 60 kg

DRUGS (3)
  1. MIRABEGRON [Suspect]
     Indication: HYPERTONIC BLADDER
     Dosage: 50 MG, UID/QD
     Route: 048
     Dates: start: 20121121
  2. CRAVIT [Concomitant]
     Indication: CYSTITIS NONINFECTIVE
     Dosage: UNK
     Route: 048
     Dates: start: 20121121, end: 20121124
  3. LASIX                              /00032601/ [Concomitant]
     Indication: OEDEMA DUE TO RENAL DISEASE
     Dosage: UNK
     Route: 048
     Dates: start: 20121219

REACTIONS (1)
  - No adverse event [Unknown]
